FAERS Safety Report 9070905 (Version 8)
Quarter: 2015Q1

REPORT INFORMATION
  Report Type: Spontaneous
  Country: US (occurrence: US)
  Receive Date: 20130129
  Receipt Date: 20150217
  Transmission Date: 20150721
  Serious: Yes (Hospitalization, Other)
  Sender: FDA-Public Use
  Company Number: US-GLAXOSMITHKLINE-A0982499A

PATIENT
  Age: 23 Year
  Sex: Female

DRUGS (13)
  1. FLOLAN [Suspect]
     Active Substance: EPOPROSTENOL SODIUM
     Dosage: UNK
     Dates: start: 20090922
  2. CHLORAPREP [Suspect]
     Active Substance: CHLORHEXIDINE GLUCONATE\ISOPROPYL ALCOHOL
     Route: 061
  3. LASIX [Concomitant]
     Active Substance: FUROSEMIDE
  4. FLOLAN [Suspect]
     Active Substance: EPOPROSTENOL SODIUM
     Indication: COR PULMONALE CHRONIC
     Dosage: CONTINUOUSLY72.5 NG/KG/MINCONCENTRATION 60,000 NG/MLVIAL STRENGTH 1.5 MG
     Route: 042
     Dates: start: 20090922
  5. COUMADIN [Concomitant]
     Active Substance: WARFARIN SODIUM
  6. LETAIRIS [Concomitant]
     Active Substance: AMBRISENTAN
     Indication: COR PULMONALE CHRONIC
  7. METHIMAZOLE. [Concomitant]
     Active Substance: METHIMAZOLE
  8. ALDACTAZIDE [Concomitant]
     Active Substance: HYDROCHLOROTHIAZIDE\SPIRONOLACTONE
  9. LETAIRIS [Concomitant]
     Active Substance: AMBRISENTAN
     Indication: PULMONARY HYPERTENSION
     Route: 048
     Dates: start: 20100806
  10. ADCIRCA [Concomitant]
     Active Substance: TADALAFIL
  11. FLOLAN [Suspect]
     Active Substance: EPOPROSTENOL SODIUM
     Dates: start: 20090922
  12. FLOLAN [Suspect]
     Active Substance: EPOPROSTENOL SODIUM
     Dosage: 95 NG/KG/MIN, CO
  13. OPSUMIT [Concomitant]
     Active Substance: MACITENTAN

REACTIONS (12)
  - Musculoskeletal pain [Unknown]
  - Full blood count abnormal [Unknown]
  - Hyperhidrosis [Unknown]
  - Hospitalisation [Recovered/Resolved]
  - Clostridium difficile infection [Not Recovered/Not Resolved]
  - Flushing [Unknown]
  - Diarrhoea [Unknown]
  - Hypersensitivity [Unknown]
  - Device related infection [Unknown]
  - Thyroid disorder [Unknown]
  - Rash [Unknown]
  - Pain in jaw [Unknown]

NARRATIVE: CASE EVENT DATE: 20130115
